FAERS Safety Report 4548123-0 (Version None)
Quarter: 2005Q1

REPORT INFORMATION
  Report Type: 
  Country: None (occurrence: None)
  Receive Date: 20050104
  Receipt Date: 20050104
  Transmission Date: 20050727
  Serious: Yes (Life-Threatening, Hospitalization)
  Sender: FDA-Public Use
  Company Number: None

PATIENT
  Age: 71 Year
  Sex: Male
  Weight: 116.2 kg

DRUGS (5)
  1. GEMFIBROZIL [Suspect]
  2. SIMVASTATIN [Concomitant]
  3. FOSINOPRIL NA [Concomitant]
  4. INSULIN, ASPART, HUMAN [Concomitant]
  5. INSULIN GLARGINE, HUMAN [Concomitant]

REACTIONS (1)
  - RHABDOMYOLYSIS [None]
